FAERS Safety Report 24975888 (Version 2)
Quarter: 2025Q4

REPORT INFORMATION
  Report Type: Spontaneous
  Country: US (occurrence: US)
  Receive Date: 20250217
  Receipt Date: 20251204
  Transmission Date: 20260117
  Serious: Yes (Other)
  Sender: COOPERSURGICAL
  Company Number: US-COOPERSURGICAL, INC.-2025CPS000876

PATIENT
  Age: 42 Year
  Sex: Female
  Weight: 94.785 kg

DRUGS (2)
  1. PARAGARD T 380A [Suspect]
     Active Substance: COPPER
     Indication: Contraception
     Dosage: UNK
     Route: 015
     Dates: start: 20140924, end: 20201026
  2. VALSARTAN AND HYDROCHLOROTHIAZIDE [Concomitant]
     Active Substance: HYDROCHLOROTHIAZIDE\VALSARTAN
     Dosage: UNK
     Dates: start: 2015

REACTIONS (13)
  - Hysterectomy [Recovered/Resolved]
  - Reproductive complication associated with device [Not Recovered/Not Resolved]
  - Device breakage [Recovered/Resolved]
  - Foreign body in reproductive tract [Recovered/Resolved]
  - Complication of device removal [Recovered/Resolved]
  - Embedded device [Recovered/Resolved]
  - Emotional distress [Unknown]
  - Premature menopause [Unknown]
  - Trichomoniasis [Unknown]
  - Device expulsion [Recovered/Resolved]
  - Heavy menstrual bleeding [Recovered/Resolved]
  - Dysmenorrhoea [Recovered/Resolved]
  - Abnormal uterine bleeding [Recovered/Resolved]

NARRATIVE: CASE EVENT DATE: 20190601
